FAERS Safety Report 11831332 (Version 3)
Quarter: 2016Q2

REPORT INFORMATION
  Report Type: Spontaneous
  Country: PT (occurrence: PT)
  Receive Date: 20151214
  Receipt Date: 20160512
  Transmission Date: 20160815
  Serious: Yes (Other)
  Sender: FDA-Public Use
  Company Number: PT-ACTAVIS-2015-27405

PATIENT
  Age: 75 Year
  Sex: Female
  Weight: 46 kg

DRUGS (5)
  1. DOCETAXEL AUROVITAS [Suspect]
     Active Substance: DOCETAXEL
     Indication: BREAST CANCER
     Dosage: 90 MG/M2, 1/ THREE WEEKS (3? CICLO DE ADMINISTRA??O - 3RD ADMINISTRATION CYCLE)
     Route: 042
     Dates: start: 20151103, end: 20151103
  2. SODIUM CHLORIDE. [Concomitant]
     Active Substance: SODIUM CHLORIDE
     Indication: VEHICLE SOLUTION USE
     Dosage: 350 ML, DAILY;100ML PRIOR TO ADMINIST OF DOCETAXEL AND250 ML CONCOMITANT ADMINIST OF  DOCETAXEL
     Route: 042
     Dates: start: 20151103, end: 20151103
  3. DEXAMETASONA /00016001/ [Concomitant]
     Active Substance: DEXAMETHASONE
     Indication: ALLERGY PROPHYLAXIS
     Dosage: 20 MG, DAILY (COMO PARTE DO ESQUEMA DE PR?-MEDICA??O-AS PART OF PRE-MEDICATION REGIMEN)
     Route: 042
     Dates: start: 20151103, end: 20151103
  4. ONDANSETROM /00955301/ [Concomitant]
     Active Substance: ONDANSETRON
     Indication: ALLERGY PROPHYLAXIS
     Dosage: UNK (AS PART OF THE PRE-MEDICATION REGIMEN: 1 AMPOULE OF ONDANSETROML.)
     Route: 042
     Dates: start: 20151103, end: 20151103
  5. EPIRRUBICINA [Concomitant]
     Active Substance: EPIRUBICIN
     Indication: BREAST CANCER
     Dosage: UNK (FEZ 10 CICLOS DE EPIRRUBICINA + DOCETAXEL - SHE HAD 10 CYCLES OF EPIRUBICIN + DOCETAXEL)
     Route: 042
     Dates: start: 201503, end: 2015

REACTIONS (4)
  - Infusion site induration [Unknown]
  - Onycholysis [Unknown]
  - Skin exfoliation [Unknown]
  - Injection site exfoliation [Unknown]

NARRATIVE: CASE EVENT DATE: 2015
